FAERS Safety Report 21042888 (Version 12)
Quarter: 2023Q1

REPORT INFORMATION
  Report Type: 
  Country: GB (occurrence: GB)
  Receive Date: 20220705
  Receipt Date: 20230124
  Transmission Date: 20230418
  Serious: Yes (Hospitalization)
  Sender: FDA-Public Use
  Company Number: GB-SYNTHON BV-IN51PV22_64904

PATIENT
  Age: 76 Year
  Sex: Female

DRUGS (14)
  1. TAMSULOSIN [Suspect]
     Active Substance: TAMSULOSIN
     Indication: Product used for unknown indication
     Dosage: 400 MICROGRAM, ONE IN MORNING
     Route: 048
  2. OMEPRAZOLE [Suspect]
     Active Substance: OMEPRAZOLE
     Indication: Duodenal ulcer
     Dosage: 20 MILLIGRAM, ONE IN THE MORNING AND ONE AT NIGHT
     Route: 048
  3. OMEPRAZOLE [Suspect]
     Active Substance: OMEPRAZOLE
     Dosage: ONE IN THE MORNING
  4. ACETAMINOPHEN [Suspect]
     Active Substance: ACETAMINOPHEN
     Indication: Product used for unknown indication
     Dosage: UNK, PRN (WHEN REQUIRED)
     Route: 048
  5. SERTRALINE [Suspect]
     Active Substance: SERTRALINE HYDROCHLORIDE
     Indication: Product used for unknown indication
     Dosage: 100 MILLIGRAM, ONE DAILY
     Route: 048
  6. CALCIUM CARBONATE\CHOLECALCIFEROL [Suspect]
     Active Substance: CALCIUM CARBONATE\CHOLECALCIFEROL
     Indication: Product used for unknown indication
     Dosage: ONE IN THE MORNING
     Route: 048
  7. CREON [Suspect]
     Active Substance: PANCRELIPASE AMYLASE\PANCRELIPASE LIPASE\PANCRELIPASE PROTEASE
     Dosage: TWO WITH EACH MEAL AND ONE WITH SNACKS
     Route: 048
  8. FUROSEMIDE [Suspect]
     Active Substance: FUROSEMIDE
     Indication: Product used for unknown indication
     Dosage: 20 MILLIGRAM
     Route: 048
  9. LOPERAMIDE [Suspect]
     Active Substance: LOPERAMIDE
     Dosage: WHEN REQUIRED
     Route: 048
  10. SPIRONOLACTONE [Suspect]
     Active Substance: SPIRONOLACTONE
     Dosage: HALF IN THE MORNING
     Route: 048
  11. SPIRONOLACTONE [Suspect]
     Active Substance: SPIRONOLACTONE
     Dosage: 12.5 MILLIGRAM, QD
     Route: 048
  12. ATORVASTATIN [Concomitant]
     Active Substance: ATORVASTATIN
     Indication: Hypercholesterolaemia
     Dosage: 10 MILLIGRAM, ONE AT NIGHT
     Route: 048
  13. VITAMIN B [Concomitant]
     Active Substance: VITAMIN B
     Dosage: ONE IN THE MORNING AND ONE AT NIGHT
     Route: 048
  14. VITAMIN B [Concomitant]
     Active Substance: VITAMIN B
     Dosage: 1 DOSAGE FORM, QD, ONE IN THE MORNING AND ONE AT NIGHT
     Route: 048

REACTIONS (4)
  - Vomiting [Unknown]
  - Drug dispensed to wrong patient [Unknown]
  - Wrong product administered [Recovered/Resolved]
  - Product dispensing error [Recovered/Resolved]
